FAERS Safety Report 8814132 (Version 2)
Quarter: 2013Q1

REPORT INFORMATION
  Report Type: Spontaneous
  Country: FR (occurrence: None)
  Receive Date: 20120925
  Receipt Date: 20130305
  Transmission Date: 20140127
  Serious: Yes (Other)
  Sender: FDA-Public Use
  Company Number: 2012-003399

PATIENT
  Age: 70 Year
  Sex: Female

DRUGS (9)
  1. ACTONEL [Suspect]
     Indication: METASTASES TO BONE
     Route: 048
     Dates: start: 20111110, end: 20120430
  2. ACTONEL [Suspect]
     Route: 048
     Dates: start: 20111110, end: 20120430
  3. AROMASINE [Suspect]
     Indication: BREAST CANCER
     Route: 048
     Dates: start: 20111110, end: 20120430
  4. AROMASINE [Suspect]
     Indication: METASTASES TO BONE
     Route: 048
     Dates: start: 20111110, end: 20120430
  5. ZECLAR [Suspect]
     Route: 048
     Dates: start: 20120417, end: 20120425
  6. COTAREG [Concomitant]
  7. OMEPRAZOLE [Concomitant]
  8. ALL OTHER THERAPEUTIC PRODUCTS [Concomitant]
  9. CACIT D3 [Concomitant]

REACTIONS (1)
  - Hepatitis [None]
